FAERS Safety Report 7622467-8 (Version None)
Quarter: 2011Q3

REPORT INFORMATION
  Report Type: 
  Country: None (occurrence: None)
  Receive Date: 20110720
  Receipt Date: 20110707
  Transmission Date: 20111222
  Serious: Yes (Other)
  Sender: FDA-Public Use
  Company Number: GR-UCBSA-036772

PATIENT
  Age: 77 Year
  Sex: Female
  Weight: 80 kg

DRUGS (5)
  1. CYCLOSPORINE [Concomitant]
     Indication: RHEUMATOID ARTHRITIS
  2. CIMZIA [Suspect]
     Indication: RHEUMATOID ARTHRITIS
     Dosage: AS USED: 200 MG, TOTAL DAILY DOSE: 400 MG
     Route: 058
     Dates: start: 20110620, end: 20110620
  3. PREDNISOLONE [Concomitant]
     Indication: RHEUMATOID ARTHRITIS
  4. SIMVASTATIN [Concomitant]
     Indication: HYPERLIPIDAEMIA
  5. ALFACALCIDOL [Concomitant]
     Indication: OSTEOPOROSIS

REACTIONS (1)
  - HERPES ZOSTER [None]
